FAERS Safety Report 6998002-4 (Version None)
Quarter: 2010Q3

REPORT INFORMATION
  Report Type: 
  Country: None (occurrence: None)
  Receive Date: 20100920
  Receipt Date: 20100331
  Transmission Date: 20110219
  Serious: Yes (Other)
  Sender: FDA-Public Use
  Company Number: US-ASTRAZENECA-2009SE20964

PATIENT
  Age: 603 Month
  Sex: Male
  Weight: 103.4 kg

DRUGS (11)
  1. SEROQUEL [Suspect]
     Route: 048
     Dates: start: 20070101
  2. SEROQUEL [Suspect]
     Route: 048
     Dates: start: 20080301
  3. CYMBALTA [Concomitant]
  4. DOCUSATE [Concomitant]
  5. GLYCOLAX SPN [Concomitant]
  6. LUNESTA [Concomitant]
  7. OPANA ER [Concomitant]
  8. PERCOCET [Concomitant]
  9. DHEA [Concomitant]
  10. FLEXERIL [Concomitant]
  11. POTASSIUM [Concomitant]

REACTIONS (1)
  - DIABETES MELLITUS INADEQUATE CONTROL [None]
